FAERS Safety Report 22093902 (Version 1)
Quarter: 2023Q1

REPORT INFORMATION
  Report Type: Spontaneous
  Country: CN (occurrence: CN)
  Receive Date: 20230314
  Receipt Date: 20230314
  Transmission Date: 20230417
  Serious: Yes (Other)
  Sender: FDA-Public Use
  Company Number: CN-BAYER-2023A028348

PATIENT
  Age: 91 Year
  Sex: Female

DRUGS (2)
  1. CIPROFLOXACIN [Suspect]
     Active Substance: CIPROFLOXACIN
     Indication: Pneumonia
     Dosage: 2 BOTTLES, QD
     Route: 041
     Dates: start: 20230223, end: 20230301
  2. CEFTAZIDIME [Concomitant]
     Active Substance: CEFTAZIDIME
     Indication: Anti-infective therapy
     Dosage: UNK
     Dates: start: 20230223

REACTIONS (3)
  - Depressed level of consciousness [Recovering/Resolving]
  - Inappropriate schedule of product administration [None]
  - Product prescribing issue [None]

NARRATIVE: CASE EVENT DATE: 20230223
